FAERS Safety Report 23331844 (Version 1)
Quarter: 2023Q4

REPORT INFORMATION
  Report Type: Spontaneous
  Country: None (occurrence: US)
  Receive Date: 20231222
  Receipt Date: 20231222
  Transmission Date: 20240110
  Serious: Yes (Death)
  Sender: FDA-Public Use
  Company Number: US-Amphastar Pharmaceuticals, Inc.-2149667

PATIENT
  Sex: Female

DRUGS (4)
  1. BAQSIMI [Suspect]
     Active Substance: GLUCAGON
     Indication: Hypoglycaemia
     Route: 045
  2. BASAGLAR KWIKPEN [Suspect]
     Active Substance: INSULIN GLARGINE
  3. HUMALOG KWIKPEN [Suspect]
     Active Substance: INSULIN LISPRO
  4. TRULICITY [Suspect]
     Active Substance: DULAGLUTIDE

REACTIONS (1)
  - Death [Fatal]
